FAERS Safety Report 9629544 (Version 1)
Quarter: 2013Q4

REPORT INFORMATION
  Report Type: Spontaneous
  Country: US (occurrence: US)
  Receive Date: 20131017
  Receipt Date: 20131017
  Transmission Date: 20140711
  Serious: No
  Sender: FDA-Public Use
  Company Number: US-009507513-1310USA007193

PATIENT
  Age: 28 Year
  Sex: Female
  Weight: 67.57 kg

DRUGS (4)
  1. NEXPLANON [Suspect]
     Indication: CONTRACEPTION
     Dosage: UNK
     Route: 059
     Dates: start: 20131009
  2. DOXYCLIN [Concomitant]
  3. CODEINE (+) GUAIFENESIN [Concomitant]
  4. ALBUTEROL [Concomitant]

REACTIONS (1)
  - Nausea [Not Recovered/Not Resolved]
